FAERS Safety Report 15395064 (Version 7)
Quarter: 2019Q3

REPORT INFORMATION
  Report Type: Report from Study
  Country: DE (occurrence: DE)
  Receive Date: 20180918
  Receipt Date: 20190711
  Transmission Date: 20191004
  Serious: Yes (Hospitalization, Other)
  Sender: FDA-Public Use
  Company Number: DE-ROCHE-2184210

PATIENT
  Age: 55 Year
  Sex: Female
  Weight: 93 kg

DRUGS (12)
  1. OCRELIZUMAB. [Suspect]
     Active Substance: OCRELIZUMAB
     Indication: MULTIPLE SCLEROSIS
     Route: 042
     Dates: start: 20180920
  2. PARACETAMOL [Concomitant]
     Active Substance: ACETAMINOPHEN
     Indication: PREMEDICATION
     Route: 048
     Dates: start: 20180830
  3. SINGULAIR [Concomitant]
     Active Substance: MONTELUKAST SODIUM
     Indication: ASTHMA
     Route: 048
     Dates: start: 201807, end: 201809
  4. PREDNISOLUT [PREDNISOLONE HEMISUCCINATE] [Concomitant]
     Indication: PREMEDICATION
     Route: 042
     Dates: start: 20180830
  5. PANTOZOL [Concomitant]
     Active Substance: PANTOPRAZOLE SODIUM
     Route: 048
     Dates: start: 20180830
  6. OCRELIZUMAB. [Suspect]
     Active Substance: OCRELIZUMAB
     Route: 042
     Dates: start: 20190313
  7. LEVOTHYROXINE SODIUM;POTASSIUM IODIDE [Concomitant]
     Indication: HYPOTHYROIDISM
     Route: 048
     Dates: start: 2000
  8. RESTEX [Concomitant]
     Active Substance: BENSERAZIDE\LEVODOPA
     Indication: RESTLESS LEGS SYNDROME
     Dosage: 100/25 MG
     Route: 048
     Dates: start: 2016
  9. HISTAKUT [Concomitant]
     Indication: PREMEDICATION
     Route: 042
     Dates: start: 20180830
  10. PANTOZOL [Concomitant]
     Active Substance: PANTOPRAZOLE SODIUM
     Indication: PROPHYLAXIS
     Route: 048
     Dates: start: 20180908
  11. OCRELIZUMAB. [Suspect]
     Active Substance: OCRELIZUMAB
     Indication: PRIMARY PROGRESSIVE MULTIPLE SCLEROSIS
     Dosage: ON 20/SEP/2018, MOST RECENT DOSE
     Route: 042
     Dates: start: 20180830
  12. LEVOTHYROXINE SODIUM;POTASSIUM IODIDE [Concomitant]
     Route: 048

REACTIONS (2)
  - Viral pharyngitis [Recovered/Resolved]
  - Immunoglobulins decreased [Not Recovered/Not Resolved]

NARRATIVE: CASE EVENT DATE: 20180907
